FAERS Safety Report 8015975-1 (Version None)
Quarter: 2011Q4

REPORT INFORMATION
  Report Type: 
  Country: None (occurrence: None)
  Receive Date: 20111223
  Receipt Date: 20111216
  Transmission Date: 20120403
  Serious: Yes (Hospitalization, Other)
  Sender: FDA-Public Use
  Company Number: NSR_00330_2011

PATIENT

DRUGS (1)
  1. LAMOTRIGINE [Suspect]
     Indication: PRODUCT USED FOR UNKNOWN INDICATION
     Dosage: (DF)

REACTIONS (12)
  - EPILEPSY [None]
  - VENTRICULAR FIBRILLATION [None]
  - POISONING [None]
  - SUICIDE ATTEMPT [None]
  - ARRHYTHMIA [None]
  - SHOCK [None]
  - RHABDOMYOLYSIS [None]
  - COMA [None]
  - RESPIRATORY DEPRESSION [None]
  - ATRIOVENTRICULAR BLOCK [None]
  - HYPOKALAEMIA [None]
  - INCORRECT DOSE ADMINISTERED [None]
